FAERS Safety Report 6856664-6 (Version None)
Quarter: 2010Q3

REPORT INFORMATION
  Report Type: 
  Country: None (occurrence: None)
  Receive Date: 20100716
  Receipt Date: 20100716
  Transmission Date: 20110219
  Serious: Yes (Life-Threatening, Disabling)
  Sender: FDA-Public Use
  Company Number: None

PATIENT
  Age: 57 Year
  Sex: Female
  Weight: 77.1115 kg

DRUGS (9)
  1. LUNESTA [Suspect]
     Indication: INSOMNIA
     Dosage: 1 AS NEEDED ORAL
     Route: 048
     Dates: start: 20090505, end: 20100101
  2. REBIF [Concomitant]
  3. CARDIVAL [Concomitant]
  4. FOSINAPRIL [Concomitant]
  5. BACLUFEN [Concomitant]
  6. CELABEX [Concomitant]
  7. OXYCODONE [Concomitant]
  8. PRAVISTATAN [Concomitant]
  9. CILATPRAM [Concomitant]

REACTIONS (1)
  - HYPERSOMNIA [None]
